FAERS Safety Report 22102297 (Version 1)
Quarter: 2023Q1

REPORT INFORMATION
  Report Type: Report from Study
  Country: GB (occurrence: GB)
  Receive Date: 20230316
  Receipt Date: 20230316
  Transmission Date: 20230417
  Serious: Yes (Death, Hospitalization, Other)
  Sender: FDA-Public Use
  Company Number: GB-CELLTRION INC.-2021GB019408

PATIENT

DRUGS (290)
  1. TRASTUZUMAB [Suspect]
     Active Substance: TRASTUZUMAB
     Indication: HER2 positive breast cancer
     Dosage: 400 MG (LOADING DOSE), Q3W
     Route: 042
     Dates: start: 20150513, end: 20150513
  2. TRASTUZUMAB [Suspect]
     Active Substance: TRASTUZUMAB
     Indication: Breast cancer metastatic
     Dosage: 300 MG, Q3W EVERY 3 WEEKS (DOSE FORM: 230; 300 MILLIGRAM, 3XW/ START DATE: 08-JAN-2016)
     Route: 042
     Dates: start: 20150603, end: 20150804
  3. TRASTUZUMAB [Suspect]
     Active Substance: TRASTUZUMAB
     Dosage: 300 MG (DOSE FORM: 230)
     Route: 042
  4. TRASTUZUMAB [Suspect]
     Active Substance: TRASTUZUMAB
     Dosage: 275 MG, Q3W EVERY 3 WEEKS (DOSE FORM: 230; 400 MILLIGRAM, 3XW/ START DATE: 13-MAY-2015)
     Route: 042
     Dates: start: 20150818, end: 20151211
  5. TRASTUZUMAB [Suspect]
     Active Substance: TRASTUZUMAB
     Dosage: 300 MG, Q3W EVERY 3 WEEKS (DOSE FORM: 230)
     Route: 042
     Dates: start: 20160108, end: 20160405
  6. TRASTUZUMAB [Suspect]
     Active Substance: TRASTUZUMAB
     Dosage: 300 MG, Q3W
     Route: 042
     Dates: start: 20150603, end: 20150828
  7. TRASTUZUMAB [Suspect]
     Active Substance: TRASTUZUMAB
     Dosage: 275 MILLIGRAM, Q3W / START DATE:18-SEP-2015; DOSE FORM: 230
     Route: 042
     Dates: start: 20150918, end: 20151211
  8. TRASTUZUMAB [Suspect]
     Active Substance: TRASTUZUMAB
     Dosage: 480 MG, EVERY 1 WEEK (DOSE FORM: 230; 160 MILLIGRAM, Q3W/ START DATE: 10-MAY-2017)
     Route: 042
     Dates: end: 20180808
  9. TRASTUZUMAB [Suspect]
     Active Substance: TRASTUZUMAB
     Dosage: 480 MG, EVERY 1 WEEK (DOSE FORM: 230; 160 MILLIGRAM, Q3W/ START DATE: 10-MAY-2017)
     Route: 042
     Dates: end: 20180808
  10. TRASTUZUMAB [Suspect]
     Active Substance: TRASTUZUMAB
     Dosage: 480 MG, EVERY 1 WEEK (DOSE FORM: 230; 160 MILLIGRAM, Q3W/ START DATE: 10-MAY-2017)
     Route: 042
     Dates: end: 20180808
  11. TRASTUZUMAB [Suspect]
     Active Substance: TRASTUZUMAB
     Dosage: 275 MG, EVERY 2 WEEKS (DOSE FORM: 230; 275 MILLIGRAM, Q3W / START DATE:18-SEP-2015)
     Route: 042
     Dates: start: 20150918, end: 20151211
  12. TRASTUZUMAB [Suspect]
     Active Substance: TRASTUZUMAB
     Dosage: 275 MG, EVERY 2 WEEKS (DOSE FORM: 230; 275 MILLIGRAM, Q3W / START DATE:18-SEP-2015)
     Route: 042
     Dates: start: 20150918, end: 20151211
  13. TRASTUZUMAB [Suspect]
     Active Substance: TRASTUZUMAB
     Dosage: 275 MG, EVERY 2 WEEKS (DOSE FORM: 230; 275 MILLIGRAM, Q3W / START DATE:18-SEP-2015)
     Route: 042
     Dates: start: 20150918, end: 20151211
  14. TRASTUZUMAB [Suspect]
     Active Substance: TRASTUZUMAB
     Dosage: 184 MG, EVERY 2 WEEKS (DOSE FORM: 230; 184 MILLIGRAM, Q3W/ START DATE: 26-APR-2016)
     Route: 042
     Dates: end: 20160720
  15. TRASTUZUMAB [Suspect]
     Active Substance: TRASTUZUMAB
     Dosage: 184 MG, EVERY 2 WEEKS (DOSE FORM: 230; 184 MILLIGRAM, Q3W/ START DATE: 26-APR-2016)
     Route: 042
     Dates: end: 20160720
  16. TRASTUZUMAB [Suspect]
     Active Substance: TRASTUZUMAB
     Dosage: 184 MG, EVERY 2 WEEKS (DOSE FORM: 230; 184 MILLIGRAM, Q3W/ START DATE: 26-APR-2016)
     Route: 042
     Dates: end: 20160720
  17. TRASTUZUMAB [Suspect]
     Active Substance: TRASTUZUMAB
     Dosage: 300 MG, EVERY 2 WEEKS (DOSE FORM: 230; 300 MILLIGRAM, Q3W/ START DATE: 03-JUN-2015)
     Route: 042
     Dates: start: 20150603, end: 20150828
  18. TRASTUZUMAB [Suspect]
     Active Substance: TRASTUZUMAB
     Dosage: 300 MG, EVERY 2 WEEKS (DOSE FORM: 230; 300 MILLIGRAM, Q3W/ START DATE: 03-JUN-2015)
     Route: 042
     Dates: start: 20150603, end: 20150828
  19. TRASTUZUMAB [Suspect]
     Active Substance: TRASTUZUMAB
     Dosage: 300 MG, EVERY 2 WEEKS (DOSE FORM: 230; 300 MILLIGRAM, Q3W/ START DATE: 03-JUN-2015)
     Route: 042
     Dates: start: 20150603, end: 20150828
  20. TRASTUZUMAB [Suspect]
     Active Substance: TRASTUZUMAB
     Dosage: 900 MG, EVERY 1 WEEK (DOSE FORM: 230; 300 MILLIGRAM, 3XW// STAT DATE: 03-JUN-2015)
     Route: 042
     Dates: end: 20150804
  21. TRASTUZUMAB [Suspect]
     Active Substance: TRASTUZUMAB
     Dosage: 900 MG, EVERY 1 WEEK (DOSE FORM: 230; 300 MILLIGRAM, 3XW// STAT DATE: 03-JUN-2015)
     Route: 042
     Dates: end: 20150804
  22. TRASTUZUMAB [Suspect]
     Active Substance: TRASTUZUMAB
     Dosage: 900 MG, EVERY 1 WEEK (DOSE FORM: 230; 300 MILLIGRAM, 3XW// STAT DATE: 03-JUN-2015)
     Route: 042
     Dates: end: 20150804
  23. TRASTUZUMAB [Suspect]
     Active Substance: TRASTUZUMAB
     Dosage: 300 MG (DOSE FORM: 230)
     Route: 042
  24. TRASTUZUMAB [Suspect]
     Active Substance: TRASTUZUMAB
     Dosage: 300 MG (DOSE FORM: 230)
     Route: 042
  25. TRASTUZUMAB [Suspect]
     Active Substance: TRASTUZUMAB
     Dosage: 300 MG, Q3W EVERY 3 WEEKS (DOSE FORM: 230; 300 MILLIGRAM, 3XW/ START DATE: 08-JAN-2016)
     Route: 042
     Dates: start: 20150603, end: 20150804
  26. TRASTUZUMAB [Suspect]
     Active Substance: TRASTUZUMAB
     Dosage: 300 MG, Q3W EVERY 3 WEEKS (DOSE FORM: 230; 300 MILLIGRAM, 3XW/ START DATE: 08-JAN-2016)
     Route: 042
     Dates: start: 20150603, end: 20150804
  27. TRASTUZUMAB [Suspect]
     Active Substance: TRASTUZUMAB
     Dosage: 900 MG, EVERY 1 WEEK (DOSE FORM: 230; 300 MILLIGRAM, 3XW// STAT DATE: 03-JUN-2015)
     Route: 042
     Dates: end: 20150604
  28. TRASTUZUMAB [Suspect]
     Active Substance: TRASTUZUMAB
     Dosage: 900 MG, EVERY 1 WEEK (DOSE FORM: 230; 300 MILLIGRAM, 3XW// STAT DATE: 03-JUN-2015)
     Route: 042
     Dates: end: 20150604
  29. TRASTUZUMAB [Suspect]
     Active Substance: TRASTUZUMAB
     Dosage: 900 MG, EVERY 1 WEEK (DOSE FORM: 230; 300 MILLIGRAM, 3XW// STAT DATE: 03-JUN-2015)
     Route: 042
     Dates: end: 20150604
  30. TRASTUZUMAB [Suspect]
     Active Substance: TRASTUZUMAB
     Dosage: 400 MG, EVERY 1 CYCLE (DOSE FORM: 230; LOADING DOSE)
     Route: 041
     Dates: start: 20150513, end: 20150513
  31. TRASTUZUMAB [Suspect]
     Active Substance: TRASTUZUMAB
     Dosage: 400 MG, EVERY 1 CYCLE (DOSE FORM: 230; LOADING DOSE)
     Route: 041
     Dates: start: 20150513, end: 20150513
  32. TRASTUZUMAB [Suspect]
     Active Substance: TRASTUZUMAB
     Dosage: 400 MG, EVERY 1 CYCLE (DOSE FORM: 230; LOADING DOSE)
     Route: 041
     Dates: start: 20150513, end: 20150513
  33. TRASTUZUMAB [Suspect]
     Active Substance: TRASTUZUMAB
     Dosage: 275 MG, Q3W EVERY 3 WEEKS (DOSE FORM: 230; 400 MILLIGRAM, 3XW/ START DATE: 13-MAY-2015)
     Route: 042
     Dates: start: 20150818, end: 20151211
  34. TRASTUZUMAB [Suspect]
     Active Substance: TRASTUZUMAB
     Dosage: 275 MG, Q3W EVERY 3 WEEKS (DOSE FORM: 230; 400 MILLIGRAM, 3XW/ START DATE: 13-MAY-2015)
     Route: 042
     Dates: start: 20150818, end: 20151211
  35. TRASTUZUMAB [Suspect]
     Active Substance: TRASTUZUMAB
     Dosage: 300 MG, Q3W EVERY 3 WEEKS (DOSE FORM: 230)
     Route: 042
     Dates: start: 20160108, end: 20160405
  36. TRASTUZUMAB [Suspect]
     Active Substance: TRASTUZUMAB
     Dosage: 300 MG, Q3W EVERY 3 WEEKS (DOSE FORM: 230)
     Route: 042
     Dates: start: 20160108, end: 20160405
  37. TRASTUZUMAB [Suspect]
     Active Substance: TRASTUZUMAB
     Dosage: 444 MG, EVERY 1 WEEK (DOSE FORM: 230; 148 MILLIGRAM, 3XW/ START DATE: 10-AUG-2016)
     Route: 042
     Dates: end: 20170419
  38. TRASTUZUMAB [Suspect]
     Active Substance: TRASTUZUMAB
     Dosage: 444 MG, EVERY 1 WEEK (DOSE FORM: 230; 148 MILLIGRAM, 3XW/ START DATE: 10-AUG-2016)
     Route: 042
     Dates: end: 20170419
  39. TRASTUZUMAB [Suspect]
     Active Substance: TRASTUZUMAB
     Dosage: 444 MG, EVERY 1 WEEK (DOSE FORM: 230; 148 MILLIGRAM, 3XW/ START DATE: 10-AUG-2016)
     Route: 042
     Dates: end: 20170419
  40. TRASTUZUMAB [Suspect]
     Active Substance: TRASTUZUMAB
     Dosage: 300 MILLIGRAM, EVERY 3 WEEKS (300 MG, Q3W)
     Route: 042
     Dates: start: 20160106, end: 20160505
  41. TRASTUZUMAB [Suspect]
     Active Substance: TRASTUZUMAB
     Dosage: 300 MG
     Route: 042
  42. TRASTUZUMAB [Suspect]
     Active Substance: TRASTUZUMAB
     Dosage: 300 MG, EVERY 2 WEEKS (300 MILLIGRAM, Q3W/ START DATE: 03-JUN-2015
     Route: 042
     Dates: start: 20150603, end: 20150828
  43. TRASTUZUMAB [Suspect]
     Active Substance: TRASTUZUMAB
     Dosage: 444 MG, 1/WEEK (148 MILLIGRAM, 3XW/ START DATE: 10-AUG-2016)
     Route: 042
  44. TRASTUZUMAB [Suspect]
     Active Substance: TRASTUZUMAB
     Dosage: 400 MILLIGRAM, 3XW/ START DATE: 13-MAY-2015
     Route: 041
     Dates: start: 20150513, end: 20150513
  45. TRASTUZUMAB [Suspect]
     Active Substance: TRASTUZUMAB
     Dosage: 184 MILLIGRAM, Q3W/ START DATE: 26-APR-2016
     Route: 042
     Dates: end: 20160720
  46. TRASTUZUMAB [Suspect]
     Active Substance: TRASTUZUMAB
     Dosage: 825 MG, 1/WEEK (184 MILLIGRAM, Q3W/ START DATE: 26-APR-2016)/275 MILLIGRAM, 3XW/ START DATE:18-AUG-2
     Route: 042
     Dates: end: 20151211
  47. TRASTUZUMAB [Suspect]
     Active Substance: TRASTUZUMAB
     Dosage: 900 MG, EVERY 3 WEEKS (300 MILLIGRAM, 3XW/ START DATE: 03-JUN-2015)
     Route: 042
     Dates: start: 20150603, end: 20150604
  48. TRASTUZUMAB [Suspect]
     Active Substance: TRASTUZUMAB
     Dosage: 480 MG, 1/WEEK(160 MILLIGRAM, Q3W/ START DATE: 10-MAY-2017)
     Route: 042
     Dates: start: 20170510, end: 20180808
  49. TRASTUZUMAB [Suspect]
     Active Substance: TRASTUZUMAB
     Dosage: 444 MG, 1/WEEK; 148 MILLIGRAM, 3XW/ START DATE: 10-AUG-2016
     Route: 042
     Dates: start: 20160810, end: 20170419
  50. TRASTUZUMAB [Suspect]
     Active Substance: TRASTUZUMAB
     Dosage: 400 MILLIGRAM, QWK
     Route: 042
     Dates: start: 20170510, end: 20180808
  51. TRASTUZUMAB [Suspect]
     Active Substance: TRASTUZUMAB
     Indication: HER2 positive breast cancer
     Dosage: 400 MG, LOADING DOSE
     Route: 042
     Dates: start: 20150513, end: 20150513
  52. TRASTUZUMAB [Suspect]
     Active Substance: TRASTUZUMAB
     Indication: Breast cancer metastatic
     Dosage: 300 MG EVERY 3 WEEKS, 300 MILLIGRAM
     Route: 042
     Dates: start: 20160108, end: 20160405
  53. TRASTUZUMAB [Suspect]
     Active Substance: TRASTUZUMAB
     Dosage: 444 MG, 1/WEEK, 148 MILLIGRAM, 3XW/ START DATE: 10-AUG-2016
     Route: 042
     Dates: start: 20160810, end: 20170419
  54. TRASTUZUMAB [Suspect]
     Active Substance: TRASTUZUMAB
     Dosage: 184 MG, Q2WEEKS, 184 MILLIGRAM, Q3W/ START DATE: 26-APR-2016
     Route: 042
     Dates: end: 20160720
  55. TRASTUZUMAB [Suspect]
     Active Substance: TRASTUZUMAB
     Dosage: 900 MG, 1/WEEK, 300 MILLIGRAM, 3XW// STAT DATE: 03-JUN-2015
     Route: 042
     Dates: end: 20150804
  56. TRASTUZUMAB [Suspect]
     Active Substance: TRASTUZUMAB
     Dosage: 480 MG, 1/WEEK, 160 MILLIGRAM, Q3W/ START DATE: 10-MAY-2017
     Route: 042
     Dates: start: 20170510, end: 20180808
  57. TRASTUZUMAB [Suspect]
     Active Substance: TRASTUZUMAB
     Dosage: 400 MG, Q2WEEKS, 300 MILLIGRAM, Q3W/ START DATE: 03-JUN-2015
     Route: 042
     Dates: start: 20150513, end: 20150828
  58. TRASTUZUMAB [Suspect]
     Active Substance: TRASTUZUMAB
     Dosage: 275 MG, Q2WEEKS; 275 MILLIGRAM, Q3W / START DATE:18-SEP-2015
     Route: 042
     Dates: start: 20150818, end: 20151211
  59. TRASTUZUMAB [Suspect]
     Active Substance: TRASTUZUMAB
     Dosage: 900 MG, 1/WEEK, 300 MILLIGRAM, 3XW/ START DATE: 03-JUN-2015
     Route: 042
     Dates: end: 20150604
  60. TRASTUZUMAB [Suspect]
     Active Substance: TRASTUZUMAB
     Dosage: 480 MG, 1/WEEK, 160 MILLIGRAM, Q3W/ START DATE: 10-MAY-2017
     Route: 042
     Dates: end: 20180808
  61. TRASTUZUMAB [Suspect]
     Active Substance: TRASTUZUMAB
     Dosage: 300 MG
     Route: 042
     Dates: start: 20150603, end: 20150820
  62. TRASTUZUMAB [Suspect]
     Active Substance: TRASTUZUMAB
     Dosage: 275 MG, 3/WEEK, 400 MILLIGRAM, 3XW/ START DATE: 13-MAY-2015
     Route: 042
     Dates: start: 20150818, end: 20160720
  63. TRASTUZUMAB [Suspect]
     Active Substance: TRASTUZUMAB
     Dosage: 900 MG EVERY 3 WEEKS, 300 MILLIGRAM, 3XW/ START DATE: 08-JAN-2016
     Route: 042
     Dates: start: 20150603, end: 20150804
  64. TRASTUZUMAB [Suspect]
     Active Substance: TRASTUZUMAB
     Dosage: 300 MILLIGRAM, 3XW/ START DATE: 08-JAN-2016 (PHARMACEUTICAL DOSE FORM (FREE TEXT): INJECTION)
     Dates: end: 20160804
  65. DOCETAXEL [Suspect]
     Active Substance: DOCETAXEL
     Indication: HER2 positive breast cancer
     Dosage: 86 MILLIGRAM, EVERY 3 WEEKS (86 MG, Q3W) DOSE FORM: 230; MOST RECENT DOSE ON 18/SEP/2015; CUMULATIVE
     Route: 042
     Dates: start: 20150828, end: 20150918
  66. DOCETAXEL [Suspect]
     Active Substance: DOCETAXEL
     Indication: Breast cancer metastatic
     Dosage: 92 MILLIGRAM, EVERY 3 WEEKS (92 MG, TIW); DOSE FORM: 230; CUMULATIVE DOSE: 276.0 MG
     Route: 042
     Dates: start: 20150514, end: 20150715
  67. DOCETAXEL [Suspect]
     Active Substance: DOCETAXEL
     Dosage: 86 MILLIGRAM, EVERY 3 WEEKS; DOSE FORM: 230; MOST RECENT DOSE ON 18/SEP/2015; CUMULATIVE DOSE: 176.0
     Route: 042
     Dates: start: 20150828, end: 20150918
  68. DOCETAXEL [Suspect]
     Active Substance: DOCETAXEL
     Dosage: 92 MILLIGRAM, EVERY 3 WEEKS; DOSE FORM: 230; CUMULATIVE DOSE: 276.0 MG
     Route: 042
     Dates: start: 20150514, end: 20150715
  69. DOCETAXEL [Suspect]
     Active Substance: DOCETAXEL
     Dosage: 86 MILLIGRAM, EVERY 3 WEEKS (86 MG, Q3W); DOSE FORM: 16; CUMULATIVE DOSE: 176.619 MG
     Route: 042
     Dates: start: 20150828, end: 20150918
  70. DOCETAXEL [Suspect]
     Active Substance: DOCETAXEL
     Dosage: 92 MILLIGRAM, EVERY 3 WEEKS (92 MG, Q3W); DOSE FORM: 16; CUMULATIVE DOSE: 176.619 MG
     Route: 042
     Dates: start: 20150514, end: 20150715
  71. DOCETAXEL [Suspect]
     Active Substance: DOCETAXEL
     Dosage: 368 MILLIGRAM
     Route: 065
  72. DOCETAXEL [Suspect]
     Active Substance: DOCETAXEL
     Dosage: 86 MILLIGRAM, EVERY 3 WEEKS (86 MG, Q3W); CUMULATIVE DOSE: 368 MG
     Route: 065
     Dates: start: 20150828, end: 20150918
  73. DOCETAXEL [Suspect]
     Active Substance: DOCETAXEL
     Dosage: 92 MILLIGRAM, EVERY 3 WEEKS (92 MG, TIW); CUMULATIVE DOSE: 368 MG
     Route: 065
     Dates: start: 20150514, end: 20150715
  74. DOCETAXEL [Suspect]
     Active Substance: DOCETAXEL
     Dosage: 368 MILLIGRAM; CUMULATIVE DOSE: 362 MG
     Route: 065
  75. DOCETAXEL [Suspect]
     Active Substance: DOCETAXEL
     Dosage: 86 MG, EVERY 3 WEEKS (MOST RECENT DOSE ON 18/SEP/2015) (ADDITIONAL INFO: MISUSE, OFF LABEL USE)
     Route: 042
     Dates: start: 20150828, end: 20150918
  76. DOCETAXEL [Suspect]
     Active Substance: DOCETAXEL
     Dosage: 368 MG (ADDITIONAL INFO: MISUSE, OFF LABEL USE)
  77. DOCETAXEL [Suspect]
     Active Substance: DOCETAXEL
     Dosage: 92 MG, EVERY 3 WEEKS (ADDITIONAL INFO: MISUSE, OFF LABEL USE)
     Route: 042
     Dates: start: 20150514, end: 20150715
  78. EXEMESTANE [Suspect]
     Active Substance: EXEMESTANE
     Indication: HER2 positive breast cancer
     Dosage: 25 MILLIGRAM DAILY; 25 MILLIGRAM, QD
     Route: 048
     Dates: start: 20151013, end: 201604
  79. EXEMESTANE [Suspect]
     Active Substance: EXEMESTANE
     Indication: Breast cancer metastatic
  80. EXEMESTANE [Suspect]
     Active Substance: EXEMESTANE
     Indication: HER2 positive breast cancer
     Dosage: 25 MILLIGRAM, QD (CUMULATIVE DOSE: 2225 MG)
     Route: 048
     Dates: start: 20151013, end: 201604
  81. EXEMESTANE [Suspect]
     Active Substance: EXEMESTANE
     Indication: Breast cancer metastatic
     Dosage: 25 MILLIGRAM, QD (CUMULATIVE DOSE: 2225 MG)/PRODUCT NAME: AROMASIN
     Route: 048
     Dates: start: 20151013, end: 201604
  82. EXEMESTANE [Suspect]
     Active Substance: EXEMESTANE
     Dosage: 25 MILLIGRAM, QD (PRODUCT NAME: AROMASIN)
     Route: 048
     Dates: start: 20151013, end: 201604
  83. HERCEPTIN [Suspect]
     Active Substance: TRASTUZUMAB
     Indication: Breast cancer metastatic
     Dosage: 400 MILLIGRAM, EVERY 3 WEEKS (400 MG, Q3W (LOADING DOSE)
     Route: 042
     Dates: start: 20150513, end: 20150513
  84. HERCEPTIN [Suspect]
     Active Substance: TRASTUZUMAB
     Dosage: 275 MILLIGRAM, EVERY 3 WEEKS (275 MG, UNK)
     Route: 042
     Dates: start: 20150818, end: 20151211
  85. HERCEPTIN [Suspect]
     Active Substance: TRASTUZUMAB
     Dosage: 300 MILLIGRAM, EVERY 3 WEEKS (300 MG, Q3W)
     Route: 042
     Dates: start: 20160108, end: 20160405
  86. HERCEPTIN [Suspect]
     Active Substance: TRASTUZUMAB
     Dosage: 300 MILLIGRAM, EVERY 3 WEEKS (300 MG, Q3W)
     Route: 042
     Dates: start: 20150603, end: 20150804
  87. HERCEPTIN [Suspect]
     Active Substance: TRASTUZUMAB
     Dosage: 300 MILLIGRAM, Q3WK (CUMULATIVE DOSE: 400 MG)
     Route: 042
     Dates: start: 20160108, end: 20160405
  88. NERATINIB [Suspect]
     Active Substance: NERATINIB
     Indication: HER2 positive breast cancer
     Dosage: 240 MILLIGRAM, QD
     Route: 048
     Dates: start: 20180825, end: 201811
  89. NERATINIB [Suspect]
     Active Substance: NERATINIB
     Indication: HER2 positive breast cancer
     Dosage: 240 MILLIGRAM, QD (CUMULATIVE DOSE: 27264 MG)
     Route: 048
     Dates: start: 20180825, end: 201811
  90. NERATINIB [Suspect]
     Active Substance: NERATINIB
     Dosage: 240 MILLIGRAM, QD
     Route: 048
     Dates: start: 20180825, end: 201811
  91. PERTUZUMAB [Suspect]
     Active Substance: PERTUZUMAB
     Indication: HER2 positive breast cancer
     Dosage: 420 MILLIGRAM, TIW (EVERY 3 WEEKS; DOSE FORM: 230)
     Route: 042
     Dates: start: 20150603, end: 20150807
  92. PERTUZUMAB [Suspect]
     Active Substance: PERTUZUMAB
     Indication: Breast cancer metastatic
     Dosage: 420 MG, Q3W
     Route: 042
  93. PERTUZUMAB [Suspect]
     Active Substance: PERTUZUMAB
     Indication: Breast cancer metastatic
     Dosage: 420 MILLIGRAM, TIW; DOSE FORM: 230; CUMULATIVE DOSE: 1260 MG
     Route: 042
     Dates: start: 20150603, end: 20150807
  94. PERTUZUMAB [Suspect]
     Active Substance: PERTUZUMAB
     Dosage: 420 MILLIGRAM, TIW; DOSE FORM: 230; CUMULATIVE DOSE: 1260 MG
     Route: 042
     Dates: start: 20150603, end: 20150807
  95. PERTUZUMAB [Suspect]
     Active Substance: PERTUZUMAB
     Indication: HER2 positive breast cancer
     Dosage: 420 MG, Q3W CUMULATIVE DOSE: 420 MG
     Route: 042
  96. PERTUZUMAB [Suspect]
     Active Substance: PERTUZUMAB
     Indication: Breast cancer metastatic
     Dosage: 420 MG EVERY 3 WEEKS (420 MG, Q3W)
     Route: 042
     Dates: start: 20150603, end: 20150807
  97. PERTUZUMAB [Suspect]
     Active Substance: PERTUZUMAB
     Dosage: 420 MILLIGRAM, 3/WEEK
     Route: 042
     Dates: start: 20150603, end: 20150807
  98. PERTUZUMAB [Suspect]
     Active Substance: PERTUZUMAB
     Dosage: 420 MILLIGRAM, 3/WEEK
     Route: 042
  99. ADO-TRASTUZUMAB EMTANSINE [Suspect]
     Active Substance: ADO-TRASTUZUMAB EMTANSINE
     Indication: Breast cancer metastatic
     Dosage: 184 MG EVERY 3 WEEKS (184 MG, Q3W)
     Route: 042
     Dates: start: 20160426, end: 20160720
  100. ADO-TRASTUZUMAB EMTANSINE [Suspect]
     Active Substance: ADO-TRASTUZUMAB EMTANSINE
     Dosage: 160 MG EVERY 3 WEEKS (184 MG, Q3W); DOSE FORM: 230; METASTATIC BREAST CANCER; CUMULATIVE DOSE: 5059.
     Route: 042
     Dates: start: 20170510, end: 20180808
  101. ADO-TRASTUZUMAB EMTANSINE [Suspect]
     Active Substance: ADO-TRASTUZUMAB EMTANSINE
     Dosage: 148MG EVERY 3 WEEKS (148 MG, Q3W)
     Route: 042
     Dates: start: 20160810, end: 20170419
  102. ADO-TRASTUZUMAB EMTANSINE [Suspect]
     Active Substance: ADO-TRASTUZUMAB EMTANSINE
     Dosage: 160 MG EVERY 3 WEEKS (184 MG, Q3W); DOSE FORM: 230; METASTATIC BREAST CANCER; CUMULATIVE DOSE: 5059.
     Route: 042
     Dates: start: 20170510, end: 20180808
  103. ADO-TRASTUZUMAB EMTANSINE [Suspect]
     Active Substance: ADO-TRASTUZUMAB EMTANSINE
     Dosage: 184 MG EVERY 3 WEEKS (184 MG, Q3W); DOSE FORM: 230; 184 MILLIGRAM, Q3W/ START DATE: 26-APR-2016; CUM
     Route: 042
     Dates: start: 20160426, end: 20160720
  104. ADO-TRASTUZUMAB EMTANSINE [Suspect]
     Active Substance: ADO-TRASTUZUMAB EMTANSINE
     Dosage: 148 MG EVERY 3 WEEKS (DOSE FORM: 230; 184 MILLIGRAM, Q3W/ START DATE: 24-APR-2016; CUMULATIVE DOSE:
     Route: 042
     Dates: start: 20160424, end: 20160720
  105. ADO-TRASTUZUMAB EMTANSINE [Suspect]
     Active Substance: ADO-TRASTUZUMAB EMTANSINE
     Dosage: 148 MG EVERY 3 WEEKS (DOSE FORM: 230; 184 MILLIGRAM, Q3W/ START DATE: 24-APR-2016; CUMULATIVE DOSE:
     Route: 042
     Dates: start: 20160424, end: 20160720
  106. ADO-TRASTUZUMAB EMTANSINE [Suspect]
     Active Substance: ADO-TRASTUZUMAB EMTANSINE
     Dosage: 148 MG EVERY 2 WEEKS (DOSE FORM: 230; 148 MILLIGRAM, Q3W/ START DATE: 10-AUG-2016; CUMULATIVE DOSE:
     Route: 042
     Dates: start: 20160810, end: 20170419
  107. ADO-TRASTUZUMAB EMTANSINE [Suspect]
     Active Substance: ADO-TRASTUZUMAB EMTANSINE
     Dosage: 148 MG EVERY 2 WEEKS (DOSE FORM: 230; 148 MILLIGRAM, Q3W/ START DATE: 10-AUG-2016; CUMULATIVE DOSE:
     Route: 042
     Dates: start: 20160810, end: 20170419
  108. ADO-TRASTUZUMAB EMTANSINE [Suspect]
     Active Substance: ADO-TRASTUZUMAB EMTANSINE
     Dosage: 184 MILLIGRAM, Q3W/ START DATE: 24-APR-2016
     Route: 042
     Dates: start: 20160424, end: 20160720
  109. ADO-TRASTUZUMAB EMTANSINE [Suspect]
     Active Substance: ADO-TRASTUZUMAB EMTANSINE
     Dosage: 184 MILLIGRAM, Q3W/ START DATE: 26-APR-2016
     Route: 042
     Dates: start: 20160426, end: 20160720
  110. ADO-TRASTUZUMAB EMTANSINE [Suspect]
     Active Substance: ADO-TRASTUZUMAB EMTANSINE
     Dosage: 148 MILLIGRAM, Q3W/ START DATE: 10-AUG-2016
     Route: 042
     Dates: start: 20160810, end: 20170419
  111. ADO-TRASTUZUMAB EMTANSINE [Suspect]
     Active Substance: ADO-TRASTUZUMAB EMTANSINE
     Dosage: 160 MILLIGRAM, Q3W/ START DATE: 10-MAY-2017
     Route: 042
     Dates: start: 20170510, end: 20180808
  112. ADO-TRASTUZUMAB EMTANSINE [Suspect]
     Active Substance: ADO-TRASTUZUMAB EMTANSINE
     Indication: Breast cancer metastatic
     Dosage: 184 MILLIGRAM, Q3W/ START DATE: 26-APR-2016
     Route: 042
     Dates: start: 20160426, end: 20160720
  113. ADO-TRASTUZUMAB EMTANSINE [Suspect]
     Active Substance: ADO-TRASTUZUMAB EMTANSINE
     Dosage: 160 MILLIGRAM, Q3W/ START DATE: 10-MAY-2017 (DOSE FORM: 230)
     Route: 042
     Dates: end: 20180808
  114. ADO-TRASTUZUMAB EMTANSINE [Suspect]
     Active Substance: ADO-TRASTUZUMAB EMTANSINE
     Dosage: 148 MILLIGRAM, Q3W/ START DATE: 10-AUG-2016
     Route: 042
     Dates: start: 20160810, end: 20170419
  115. ADO-TRASTUZUMAB EMTANSINE [Suspect]
     Active Substance: ADO-TRASTUZUMAB EMTANSINE
     Dosage: 184 MILLIGRAM, Q3W/ START DATE: 24-APR-2016
     Route: 042
     Dates: start: 20160424, end: 20160720
  116. ADO-TRASTUZUMAB EMTANSINE [Suspect]
     Active Substance: ADO-TRASTUZUMAB EMTANSINE
     Dosage: 184 MILLIGRAM, Q3W/ START DATE: 26-APR-2016 (DOSE FORM: 230)
     Route: 042
     Dates: end: 20160720
  117. ADO-TRASTUZUMAB EMTANSINE [Suspect]
     Active Substance: ADO-TRASTUZUMAB EMTANSINE
     Dosage: 184 MILLIGRAM, Q3W/ START DATE: 24-APR-2016 (DOSE FORM: 230)
     Route: 042
     Dates: end: 20160720
  118. ADO-TRASTUZUMAB EMTANSINE [Suspect]
     Active Substance: ADO-TRASTUZUMAB EMTANSINE
     Dosage: 160 MG, Q3W (DOSE FORM: 230)
     Route: 042
     Dates: start: 20170510, end: 20180808
  119. AMOXICILLIN [Concomitant]
     Active Substance: AMOXICILLIN
     Indication: Infection
     Dosage: 500 MG, EVERY 1 DAY (DOSE FORM: 245)
     Route: 048
     Dates: start: 20150804, end: 20150810
  120. AMOXICILLIN [Concomitant]
     Active Substance: AMOXICILLIN
     Dosage: UNK; ;
  121. AMOXICILLIN [Concomitant]
     Active Substance: AMOXICILLIN
     Dosage: 625 MG
     Route: 048
     Dates: start: 20150804, end: 20150810
  122. AMOXICILLIN [Concomitant]
     Active Substance: AMOXICILLIN
     Dosage: 625 MG
     Route: 048
     Dates: start: 20180923, end: 20180930
  123. AMOXICILLIN [Concomitant]
     Active Substance: AMOXICILLIN
     Indication: Infection
     Dosage: 500 MILLIGRAM, QD
     Route: 048
     Dates: start: 20150804, end: 20150810
  124. AMOXICILLIN [Concomitant]
     Active Substance: AMOXICILLIN
     Dosage: 625 MILLIGRAM; (DOSE FORM: 245)
     Route: 042
     Dates: start: 20180923, end: 20180930
  125. AMOXICILLIN [Concomitant]
     Active Substance: AMOXICILLIN
     Dosage: 1875 MG, QD (DOSE FORM: 245)
     Route: 048
     Dates: start: 20150804, end: 20150810
  126. AMOXICILLIN [Concomitant]
     Active Substance: AMOXICILLIN
     Dosage: 1500 MILLIGRAM, QD
     Route: 048
     Dates: start: 20150804, end: 20150810
  127. AMOXICILLIN [Concomitant]
     Active Substance: AMOXICILLIN
     Indication: Infection
     Dosage: 625 MILLIGRAM;
     Route: 048
     Dates: start: 20150804, end: 20150810
  128. AMOXICILLIN [Concomitant]
     Active Substance: AMOXICILLIN
     Dosage: 625 MILLIGRAM;
     Route: 048
     Dates: start: 20180923, end: 20180930
  129. AMOXICILLIN [Concomitant]
     Active Substance: AMOXICILLIN
     Dosage: 500 MG, QD (DOSE FORM: 245, CUMULATIVE DOSE: 61500 MG)
     Route: 048
     Dates: start: 20150804, end: 20150810
  130. AMOXICILLIN [Concomitant]
     Active Substance: AMOXICILLIN
     Dosage: 1500 MILLIGRAM, QD (DOSE FORM: 245; CUMULATIVE DOSE 61500 MG)
     Route: 048
     Dates: start: 20150804, end: 20150810
  131. AMOXICILLIN [Concomitant]
     Active Substance: AMOXICILLIN
     Dosage: 500 MILLIGRAM, QD (DOSE FORM: 2450; CUMULATIVE DOSE: 61500MG)
     Route: 048
     Dates: start: 20150804, end: 20150810
  132. AMOXICILLIN [Concomitant]
     Active Substance: AMOXICILLIN
     Dosage: 500 MG, QD
     Dates: start: 20150804, end: 20150810
  133. AMOXICILLIN\CLAVULANATE POTASSIUM [Concomitant]
     Active Substance: AMOXICILLIN\CLAVULANATE POTASSIUM
  134. AMOXICILLIN\CLAVULANATE POTASSIUM [Concomitant]
     Active Substance: AMOXICILLIN\CLAVULANATE POTASSIUM
     Dosage: 625 MG
     Route: 048
     Dates: start: 20180923, end: 20180930
  135. AMOXICILLIN\CLAVULANATE POTASSIUM [Concomitant]
     Active Substance: AMOXICILLIN\CLAVULANATE POTASSIUM
     Dosage: 625 MG
     Route: 048
     Dates: start: 20150804, end: 20150810
  136. BUDESONIDE [Concomitant]
     Active Substance: BUDESONIDE
     Indication: Product used for unknown indication
     Dosage: 9 MILLIGRAM, UNK (DOSE FORM: 245)
     Route: 048
     Dates: start: 20181025, end: 20181114
  137. BUDESONIDE [Concomitant]
     Active Substance: BUDESONIDE
     Indication: Product used for unknown indication
     Dosage: 9 MILLIGRAM, UNK; (DOSE FORM: 245)
     Route: 048
     Dates: start: 20181025, end: 20181114
  138. BUDESONIDE [Concomitant]
     Active Substance: BUDESONIDE
     Dosage: 9 MG
     Dates: start: 20181025, end: 20181114
  139. 3M CAVILON ANTIFUNGAL [Concomitant]
     Active Substance: MICONAZOLE NITRATE
     Indication: Prophylaxis
  140. 3M CAVILON ANTIFUNGAL [Concomitant]
     Active Substance: MICONAZOLE NITRATE
     Dosage: 92 GRAM/ START DATE: 04-AUG-2015
     Route: 061
  141. CALAMINE [Concomitant]
     Active Substance: CALAMINE\FERRIC OXIDE RED\ZINC OXIDE
     Indication: Dry skin
     Dosage: UNK
     Route: 061
     Dates: start: 201508, end: 201601
  142. CALAMINE [Concomitant]
     Active Substance: CALAMINE\FERRIC OXIDE RED\ZINC OXIDE
     Dosage: UNK
     Route: 061
     Dates: start: 201508, end: 201601
  143. CALAMINE [Concomitant]
     Active Substance: CALAMINE\FERRIC OXIDE RED\ZINC OXIDE
     Dosage: UNK; ;
     Route: 061
     Dates: start: 201508, end: 201601
  144. CALAMINE [Concomitant]
     Active Substance: CALAMINE\FERRIC OXIDE RED\ZINC OXIDE
     Dosage: UNK; ;
     Route: 061
     Dates: start: 201508, end: 201601
  145. CALAMINE [Concomitant]
     Active Substance: CALAMINE\FERRIC OXIDE RED\ZINC OXIDE
     Dosage: UNK
     Route: 061
  146. CALAMINE [Concomitant]
     Active Substance: CALAMINE\FERRIC OXIDE RED\ZINC OXIDE
     Dosage: UNK (ADDITIONAL INFO: CALAMINE [CALAMINE;GLYCEROL;ZINC OXIDE])
     Dates: start: 201508, end: 201601
  147. CALAMINE [CALAMINE;GLYCEROL;ZINC OXIDE] [Concomitant]
     Indication: Dry skin
     Dosage: UNK (DOSE FORM: LOTION)
     Route: 061
     Dates: start: 201508, end: 201601
  148. CALAMINE [CALAMINE;GLYCEROL;ZINC OXIDE] [Concomitant]
     Indication: Product used for unknown indication
  149. CALAMINE [CALAMINE;GLYCEROL;ZINC OXIDE] [Concomitant]
     Indication: Dry skin
     Dosage: UNK
     Route: 061
     Dates: start: 201508, end: 201601
  150. CETIRIZINE [Concomitant]
     Active Substance: CETIRIZINE HYDROCHLORIDE
     Indication: Product used for unknown indication
     Dosage: 1 DOSAGE FORM, QD (1 OT, QD)
     Route: 048
     Dates: start: 20150825, end: 20150827
  151. CETIRIZINE [Concomitant]
     Active Substance: CETIRIZINE HYDROCHLORIDE
     Dosage: 1 MG, QD
     Route: 048
     Dates: start: 20180825, end: 20180827
  152. CETIRIZINE [Concomitant]
     Active Substance: CETIRIZINE HYDROCHLORIDE
     Dosage: 10 MG, QD (DOSE FORM: 245)
     Route: 048
     Dates: start: 20180825, end: 20180827
  153. CETIRIZINE [Concomitant]
     Active Substance: CETIRIZINE HYDROCHLORIDE
     Dosage: 10 MILLIGRAM, UNK(DOSE FORM: 245)
     Route: 048
     Dates: end: 20190406
  154. CETIRIZINE [Concomitant]
     Active Substance: CETIRIZINE HYDROCHLORIDE
     Dosage: 10 MG, QD (DOSE FORM: 245)
     Route: 048
     Dates: start: 20150805, end: 20150807
  155. CETIRIZINE [Concomitant]
     Active Substance: CETIRIZINE HYDROCHLORIDE
     Dosage: 10 MILLIGRAM, QD
     Route: 048
     Dates: start: 20150805, end: 20190406
  156. CETIRIZINE [Concomitant]
     Active Substance: CETIRIZINE HYDROCHLORIDE
     Dosage: 10 MILLIGRAM, QD
     Route: 048
     Dates: start: 20150805, end: 20190406
  157. CETIRIZINE [Concomitant]
     Active Substance: CETIRIZINE HYDROCHLORIDE
     Dosage: 10 MILLIGRAM, UNK
     Route: 048
     Dates: end: 20190406
  158. CETIRIZINE [Concomitant]
     Active Substance: CETIRIZINE HYDROCHLORIDE
     Indication: Product used for unknown indication
     Dosage: 10 MG, QD (DOSE FORM: 245)
     Route: 048
     Dates: start: 20150805, end: 20150807
  159. CETIRIZINE [Concomitant]
     Active Substance: CETIRIZINE HYDROCHLORIDE
     Dosage: 10 MG; (DOSE FORM: 245)
     Route: 048
     Dates: end: 20190406
  160. CETIRIZINE [Concomitant]
     Active Substance: CETIRIZINE HYDROCHLORIDE
     Dosage: 1 MG, QD (DOSE FORM: 245)
     Route: 048
     Dates: start: 20180825, end: 20180827
  161. CETIRIZINE [Concomitant]
     Active Substance: CETIRIZINE HYDROCHLORIDE
     Dosage: 10 MG, QD (DOSE FORM: 245)
     Route: 048
     Dates: start: 20180825, end: 20180827
  162. CETIRIZINE [Concomitant]
     Active Substance: CETIRIZINE HYDROCHLORIDE
     Dosage: 10 MG, QD (DOSE FORM: 245)
     Route: 048
     Dates: start: 20150805, end: 20190406
  163. CETIRIZINE [Concomitant]
     Active Substance: CETIRIZINE HYDROCHLORIDE
     Dosage: 10 MG
     Dates: start: 20150805, end: 20150807
  164. CETIRIZINE [Concomitant]
     Active Substance: CETIRIZINE HYDROCHLORIDE
     Dosage: 10 MG
     Dates: start: 20150825, end: 20150827
  165. CETIRIZINE [Concomitant]
     Active Substance: CETIRIZINE HYDROCHLORIDE
     Dosage: 10 MG
     Dates: end: 20190406
  166. CHLORPHENIRAMINE MALEATE [Concomitant]
     Active Substance: CHLORPHENIRAMINE MALEATE
     Indication: Pruritus
     Dosage: 10 MILLIGRAM, UNK
     Route: 042
     Dates: start: 20150807, end: 20150807
  167. CHLORPHENIRAMINE MALEATE [Concomitant]
     Active Substance: CHLORPHENIRAMINE MALEATE
     Dosage: 10 MILLIGRAM, UNK
     Dates: start: 20150807, end: 20150807
  168. CLAVULANIC ACID [Concomitant]
     Active Substance: CLAVULANIC ACID
     Indication: Infection
     Dosage: 125 MILLIGRAM, QD (DOSE FORM: 245)
     Route: 048
     Dates: start: 20150804, end: 20150810
  169. CLAVULANIC ACID [Concomitant]
     Active Substance: CLAVULANIC ACID
     Dosage: 125 MG, QD
     Dates: start: 20150804, end: 20150810
  170. AMOXICILLIN\CLAVULANATE POTASSIUM [Concomitant]
     Active Substance: AMOXICILLIN\CLAVULANATE POTASSIUM
     Indication: Product used for unknown indication
     Dosage: 1875 MILLIGRAM, QD
     Route: 048
     Dates: start: 20150804, end: 20150810
  171. AMOXICILLIN\CLAVULANATE POTASSIUM [Concomitant]
     Active Substance: AMOXICILLIN\CLAVULANATE POTASSIUM
     Dosage: 625 MG (DOSE FORM: 245)
     Route: 048
     Dates: start: 20180923, end: 20180930
  172. AMOXICILLIN\CLAVULANATE POTASSIUM [Concomitant]
     Active Substance: AMOXICILLIN\CLAVULANATE POTASSIUM
     Dosage: 625 MG (DOSE FORM: 245)
     Route: 048
     Dates: start: 20150804, end: 20150810
  173. AMOXICILLIN\CLAVULANATE POTASSIUM [Concomitant]
     Active Substance: AMOXICILLIN\CLAVULANATE POTASSIUM
     Dosage: 625 MILLIGRAM, UNK
     Route: 042
     Dates: start: 20180923, end: 20180930
  174. AMOXICILLIN\CLAVULANATE POTASSIUM [Concomitant]
     Active Substance: AMOXICILLIN\CLAVULANATE POTASSIUM
     Indication: Product used for unknown indication
     Dosage: 1875 MG, QD (DOSE FORM: 245)
     Route: 048
     Dates: start: 20150804, end: 20150810
  175. AMOXICILLIN\CLAVULANATE POTASSIUM [Concomitant]
     Active Substance: AMOXICILLIN\CLAVULANATE POTASSIUM
     Dosage: 625 MG; (DOSE FORM: 245)
     Route: 042
     Dates: start: 20180923, end: 20180930
  176. AMOXICILLIN\CLAVULANATE POTASSIUM [Concomitant]
     Active Substance: AMOXICILLIN\CLAVULANATE POTASSIUM
     Dosage: 625 MG, EVERY 1 DAY
     Route: 048
     Dates: start: 20150804, end: 20150810
  177. AMOXICILLIN\CLAVULANATE POTASSIUM [Concomitant]
     Active Substance: AMOXICILLIN\CLAVULANATE POTASSIUM
     Dosage: 625 MG, UNK
     Route: 048
     Dates: start: 20180923, end: 20180930
  178. AMOXICILLIN\CLAVULANATE POTASSIUM [Concomitant]
     Active Substance: AMOXICILLIN\CLAVULANATE POTASSIUM
     Dosage: 625 MG
     Dates: start: 20180923, end: 20180930
  179. AMOXICILLIN\CLAVULANATE POTASSIUM [Concomitant]
     Active Substance: AMOXICILLIN\CLAVULANATE POTASSIUM
     Dosage: 625 MG, QD
     Dates: start: 20150804, end: 20150810
  180. CYCLIZINE [Concomitant]
     Active Substance: CYCLIZINE
     Indication: Product used for unknown indication
     Dosage: 50 MILLIGRAM, 50 MG
     Route: 058
     Dates: start: 201901, end: 20190406
  181. CYCLIZINE [Concomitant]
     Active Substance: CYCLIZINE
     Dosage: UNK
     Dates: start: 201901, end: 20190406
  182. DEXAMETHASONE [Concomitant]
     Active Substance: DEXAMETHASONE
     Indication: Product used for unknown indication
     Dosage: 2 MILLIGRAM/ SATRT DATE:02-OCT-2018
     Route: 048
     Dates: start: 20181002, end: 20181212
  183. DEXAMETHASONE [Concomitant]
     Active Substance: DEXAMETHASONE
     Dosage: 8 MILLIGRAM, QD
     Route: 048
     Dates: start: 20150803, end: 20150805
  184. DEXAMETHASONE [Concomitant]
     Active Substance: DEXAMETHASONE
     Dosage: 2 MG, QD (DOSE FORM: 245; THREE DAYS PRIOR TO CHEMOTHERAPY; CUMULATIVE DOSE 36 MG)
     Route: 048
     Dates: start: 20150803, end: 20150805
  185. DEXAMETHASONE [Concomitant]
     Active Substance: DEXAMETHASONE
     Dosage: 5 MILLILITER, QD (LIQUID; CUMULATIVE DOSE: 10 ML)
     Route: 047
     Dates: start: 20150714, end: 20150923
  186. DEXAMETHASONE [Concomitant]
     Active Substance: DEXAMETHASONE
     Dosage: 20 MILLILITER, QD (LIQUID)
     Route: 047
     Dates: start: 20150714, end: 20150923
  187. DEXAMETHASONE [Concomitant]
     Active Substance: DEXAMETHASONE
     Dosage: 4 MILLIGRAM, QD
     Route: 048
     Dates: start: 20150803, end: 20150805
  188. DEXAMETHASONE [Concomitant]
     Active Substance: DEXAMETHASONE
     Dosage: 5 MILLILITER, QD (LIQUID)
     Route: 047
     Dates: start: 20150714, end: 20150923
  189. DEXAMETHASONE [Concomitant]
     Active Substance: DEXAMETHASONE
     Dosage: 2 MILLIGRAM THREE DAYS PRIOR TO CHEMOTHERAPY
     Route: 048
     Dates: start: 20150803, end: 20150805
  190. DEXAMETHASONE [Concomitant]
     Active Substance: DEXAMETHASONE
     Indication: Product used for unknown indication
     Dosage: 8 MG, QD (DOSE FORM: 245)
     Route: 048
     Dates: start: 20150803, end: 20150805
  191. DEXAMETHASONE [Concomitant]
     Active Substance: DEXAMETHASONE
     Dosage: 2 MG (DOSE FORM: 245)
     Route: 048
     Dates: start: 20150803, end: 20150805
  192. DEXAMETHASONE [Concomitant]
     Active Substance: DEXAMETHASONE
     Dosage: 5 ML, QD (DOSE FORM: 245)
     Route: 047
     Dates: start: 20150714, end: 20150923
  193. DEXAMETHASONE [Concomitant]
     Active Substance: DEXAMETHASONE
     Dosage: 2 MG; (DOSE FORM: 245)
     Route: 048
     Dates: start: 20181002, end: 20181212
  194. DEXAMETHASONE [Concomitant]
     Active Substance: DEXAMETHASONE
     Dosage: 2 MG, QD THREE DAYS PRIOR TO CHEMOTHERAPY
     Dates: start: 20150803, end: 20150805
  195. DEXAMETHASONE [Concomitant]
     Active Substance: DEXAMETHASONE
     Dosage: 2 MG
     Dates: start: 20181002, end: 20181212
  196. DEXAMETHASONE [Concomitant]
     Active Substance: DEXAMETHASONE
     Dosage: 5 ML, QD LIQUID
     Dates: start: 20150714, end: 20150923
  197. DOMPERIDONE [Concomitant]
     Active Substance: DOMPERIDONE
     Indication: Prophylaxis
     Dosage: 10 MILLIGRAM, QD (DOSE FORM: 245)
     Route: 048
     Dates: start: 20150803, end: 20150805
  198. DOMPERIDONE [Concomitant]
     Active Substance: DOMPERIDONE
     Dosage: 30 MILLIGRAM, QD
     Route: 048
     Dates: start: 20150803
  199. DOMPERIDONE [Concomitant]
     Active Substance: DOMPERIDONE
     Indication: Prophylaxis
     Dosage: 30 MG, QD (DOSE FORM: 245)
     Route: 048
     Dates: start: 20150803
  200. DOMPERIDONE [Concomitant]
     Active Substance: DOMPERIDONE
     Dosage: 10 MG, QD (DOSE FORM: 245)
     Route: 048
     Dates: start: 20150803, end: 20150805
  201. DOMPERIDONE [Concomitant]
     Active Substance: DOMPERIDONE
     Dosage: 10 MG, QD
     Dates: start: 20150803, end: 20150805
  202. GLYCOPYRROLATE [Concomitant]
     Active Substance: GLYCOPYRROLATE
     Indication: Product used for unknown indication
     Dosage: 200 MICROGRAM PRN (AS NEEDED)
     Route: 058
     Dates: start: 201901, end: 20190406
  203. GLYCOPYRROLATE [Concomitant]
     Active Substance: GLYCOPYRROLATE
     Dosage: PRN (AS NEEDED)
     Dates: start: 201901, end: 20190406
  204. HYDROCORTISONE [Concomitant]
     Active Substance: HYDROCORTISONE
     Indication: Pruritus
     Dosage: 100 MILLIGRAM, 100 MG
     Route: 042
     Dates: start: 20150807, end: 20150807
  205. HYDROCORTISONE [Concomitant]
     Active Substance: HYDROCORTISONE
     Dosage: 100 MG;
     Route: 042
     Dates: start: 20150807, end: 20150807
  206. HYPROMELLOSES [Concomitant]
     Active Substance: HYPROMELLOSES
     Indication: Lacrimation increased
     Dosage: UNK, 0.33 QD
     Route: 047
     Dates: end: 20160401
  207. HYPROMELLOSES [Concomitant]
     Active Substance: HYPROMELLOSES
     Dosage: 3 DOSAGE FORM, QD (3 DF, QD) (3 OT, QD)
     Route: 047
     Dates: start: 20160401, end: 20160401
  208. HYPROMELLOSES [Concomitant]
     Active Substance: HYPROMELLOSES
     Dosage: UNK, 0.33
     Route: 047
     Dates: end: 20160401
  209. HYPROMELLOSES [Concomitant]
     Active Substance: HYPROMELLOSES
     Dosage: UNK
     Route: 047
     Dates: start: 20160401
  210. HYPROMELLOSES [Concomitant]
     Active Substance: HYPROMELLOSES
     Dosage: 3 DOSAGE FORM, QD (3 OT, QD)
     Route: 047
     Dates: end: 20160401
  211. HYPROMELLOSES [Concomitant]
     Active Substance: HYPROMELLOSES
     Dosage: 3 DF, QD
     Route: 047
     Dates: end: 20160401
  212. HYPROMELLOSES [Concomitant]
     Active Substance: HYPROMELLOSES
     Dosage: UNK, 0.33
     Dates: end: 20160401
  213. HYPROMELLOSES [Concomitant]
     Active Substance: HYPROMELLOSES
     Dosage: 3 DOSAGE FORM, QD (3 OT, QD)
     Dates: end: 20160401
  214. LACTULOSE [Concomitant]
     Active Substance: LACTULOSE
     Indication: Product used for unknown indication
     Dosage: 20 MILLILITER, OD (20 ML, M3)
     Route: 048
     Dates: start: 201901, end: 20190406
  215. LACTULOSE [Concomitant]
     Active Substance: LACTULOSE
     Dosage: UNK
  216. LACTULOSE [Concomitant]
     Active Substance: LACTULOSE
     Dosage: UNK, QD
     Dates: start: 201901, end: 20190406
  217. LANSOPRAZOLE [Concomitant]
     Active Substance: LANSOPRAZOLE
     Indication: Product used for unknown indication
     Dosage: 30 MG, QD (DOSE FORM: 245)
     Route: 048
     Dates: start: 20181002, end: 201908
  218. LANSOPRAZOLE [Concomitant]
     Active Substance: LANSOPRAZOLE
     Dosage: 30 UNK; (DOSE FORM: 245)
     Route: 048
     Dates: start: 20181002, end: 201908
  219. LANSOPRAZOLE [Concomitant]
     Active Substance: LANSOPRAZOLE
     Dosage: UNK
  220. LANSOPRAZOLE [Concomitant]
     Active Substance: LANSOPRAZOLE
     Indication: Abdominal discomfort
     Dosage: 30 MILLIGRAM, UNK
     Route: 048
     Dates: start: 20181002, end: 201908
  221. LANSOPRAZOLE [Concomitant]
     Active Substance: LANSOPRAZOLE
     Dosage: 30 MILLIGRAM, QD (DOSE FORM: 245)
     Route: 048
     Dates: start: 20181002, end: 201908
  222. LANSOPRAZOLE [Concomitant]
     Active Substance: LANSOPRAZOLE
     Dosage: 30 MG, QD
     Route: 048
     Dates: start: 20181002, end: 201901
  223. LANSOPRAZOLE [Concomitant]
     Active Substance: LANSOPRAZOLE
     Dosage: 30 MILLIGRAM, QD
     Route: 048
     Dates: start: 20181002, end: 201908
  224. LANSOPRAZOLE [Concomitant]
     Active Substance: LANSOPRAZOLE
     Dosage: 30 MILLIGRAM, UNK (GENERICS UK LANSOPRAZOLE)
     Route: 048
     Dates: start: 20181002, end: 201908
  225. LANSOPRAZOLE [Concomitant]
     Active Substance: LANSOPRAZOLE
     Dosage: 30 MG
     Dates: start: 20181002, end: 201908
  226. LEVETIRACETAM [Concomitant]
     Active Substance: LEVETIRACETAM
     Indication: Product used for unknown indication
     Dosage: 500 MILLIGRAM, QD
     Route: 048
     Dates: start: 20180918, end: 20190406
  227. LEVETIRACETAM [Concomitant]
     Active Substance: LEVETIRACETAM
     Dosage: 1000 MILLIGRAM, QD (DOSE FORM: 245; CUMULATIVE DOSE: 72041.66 MG)
     Route: 048
     Dates: start: 20180918, end: 20190406
  228. LEVETIRACETAM [Concomitant]
     Active Substance: LEVETIRACETAM
     Dosage: 500 MILLIGRAM, PER 0.5 DAY
     Route: 048
     Dates: start: 20180918, end: 20190406
  229. LEVETIRACETAM [Concomitant]
     Active Substance: LEVETIRACETAM
     Dosage: 500 MILLIGRAM, QD (DOSE FORM: 245)
     Route: 048
     Dates: start: 20180918, end: 20190406
  230. LEVETIRACETAM [Concomitant]
     Active Substance: LEVETIRACETAM
     Dosage: 500 MG, EVERY 0.5 DAYS
     Route: 048
     Dates: start: 20180918, end: 20190406
  231. LEVETIRACETAM [Concomitant]
     Active Substance: LEVETIRACETAM
     Dosage: 500 MG, EVERY 0.5 DAY (ADDITIONAL INFO: DRUG_CUMULATIVE_DOSAGE_NUMBER: 72041.66 MG)
     Dates: start: 20180918, end: 20190406
  232. LOPERAMIDE [Concomitant]
     Active Substance: LOPERAMIDE
     Indication: Product used for unknown indication
     Dosage: 2 MILLIGRAM, UNK (DOSE FORM: 245)
     Route: 048
     Dates: start: 20181025, end: 20190406
  233. LOPERAMIDE [Concomitant]
     Active Substance: LOPERAMIDE
     Indication: Product used for unknown indication
     Dosage: 2 MG (DOSE FORM:245)
     Route: 048
     Dates: start: 20181025, end: 20190406
  234. LOPERAMIDE [Concomitant]
     Active Substance: LOPERAMIDE
     Dosage: 2 MG
     Dates: start: 20181025, end: 20190406
  235. LORAZEPAM [Concomitant]
     Active Substance: LORAZEPAM
     Indication: Insomnia
     Dosage: 2 MILLIGRAM, UNK
     Route: 042
     Dates: start: 20180917, end: 20180918
  236. LORAZEPAM [Concomitant]
     Active Substance: LORAZEPAM
     Indication: Panic attack
     Dosage: 0.5 MG (DOSE FORM: 245)
     Route: 048
     Dates: start: 20160830, end: 20190406
  237. LORAZEPAM [Concomitant]
     Active Substance: LORAZEPAM
     Dosage: 0.5 MG (DOSE FORM: 245)
     Route: 048
     Dates: start: 20160830, end: 20190406
  238. LORAZEPAM [Concomitant]
     Active Substance: LORAZEPAM
     Dosage: 0.5 MILLIGRAM, UNK
     Route: 048
     Dates: start: 20160830, end: 20190406
  239. LORAZEPAM [Concomitant]
     Active Substance: LORAZEPAM
     Indication: Insomnia
     Dosage: 0.5 MILLIGRAM, UNK
     Dates: start: 20160830, end: 20190406
  240. LORAZEPAM [Concomitant]
     Active Substance: LORAZEPAM
     Indication: Panic attack
     Dosage: 2 MILLIGRAM, UNK
     Dates: start: 20180917, end: 20180918
  241. MIDAZOLAM [Concomitant]
     Active Substance: MIDAZOLAM
     Indication: Product used for unknown indication
     Dosage: 2.5 MILLIGRAM, UNK
     Route: 058
     Dates: start: 201901, end: 20190406
  242. MIDAZOLAM [Concomitant]
     Active Substance: MIDAZOLAM
     Dosage: UNK; ;
     Route: 058
     Dates: start: 201901, end: 20190406
  243. MIDAZOLAM [Concomitant]
     Active Substance: MIDAZOLAM
     Dosage: UNK
     Dates: start: 201901, end: 20190406
  244. OMEPRAZOLE [Concomitant]
     Active Substance: OMEPRAZOLE
     Indication: Prophylaxis
     Dosage: 20 MILLIGRAM EVERY 1 DAY (DOSE FORM: 9)
     Route: 048
     Dates: start: 201901, end: 20190406
  245. OMEPRAZOLE [Concomitant]
     Active Substance: OMEPRAZOLE
     Dosage: UNK
     Route: 065
  246. OMEPRAZOLE [Concomitant]
     Active Substance: OMEPRAZOLE
     Indication: Prophylaxis
     Dosage: 20 MG; (DOSE FORM: 5)
     Route: 048
     Dates: start: 201901, end: 20190406
  247. OMEPRAZOLE [Concomitant]
     Active Substance: OMEPRAZOLE
     Dosage: 20 MG, QD
     Route: 048
     Dates: start: 201901, end: 20190406
  248. OMEPRAZOLE [Concomitant]
     Active Substance: OMEPRAZOLE
     Dosage: UNK; ;
  249. OMEPRAZOLE [Concomitant]
     Active Substance: OMEPRAZOLE
     Dosage: 20 MG, QD
     Dates: start: 201901, end: 20190406
  250. OXYCODONE [Concomitant]
     Active Substance: OXYCODONE
     Indication: Product used for unknown indication
     Dosage: 1.25 MILLIGRAM, UNK
     Route: 058
     Dates: start: 201901, end: 20190406
  251. OXYCODONE [Concomitant]
     Active Substance: OXYCODONE
     Dosage: 1.25 MG
     Dates: start: 201901, end: 20190406
  252. POTASSIUM CHLORIDE [Concomitant]
     Active Substance: POTASSIUM CHLORIDE
     Indication: Product used for unknown indication
     Dosage: 2 DOSAGE FORM, QD
     Route: 048
     Dates: start: 20181120, end: 20181125
  253. POTASSIUM CHLORIDE [Concomitant]
     Active Substance: POTASSIUM CHLORIDE
     Dosage: UNK
     Route: 048
     Dates: start: 20180805, end: 20180807
  254. POTASSIUM CHLORIDE [Concomitant]
     Active Substance: POTASSIUM CHLORIDE
     Dosage: 4 DOSAGE FORM, QD
     Route: 048
     Dates: start: 20181120, end: 20181125
  255. POTASSIUM CHLORIDE [Concomitant]
     Active Substance: POTASSIUM CHLORIDE
     Dosage: 2 DOSAGE FORM, QD
     Dates: start: 20181120, end: 20181125
  256. RANITIDINE [Concomitant]
     Active Substance: RANITIDINE
     Indication: Product used for unknown indication
     Dosage: 300 MILLIGRAM, QD (PHARMACEUTICAL DOSE FORM: 245)
     Route: 048
     Dates: start: 20150805, end: 20150807
  257. RANITIDINE [Concomitant]
     Active Substance: RANITIDINE
     Dosage: 300 MILLIGRAM, QD (PHARMACEUTICAL DOSE FORM: 245)
     Route: 048
     Dates: start: 20150825
  258. RANITIDINE [Concomitant]
     Active Substance: RANITIDINE
     Dosage: 150 MILLIGRAM, QD (DOSE FORM: 245; CUMULATIVE DOSE: 3000 MG)
     Route: 048
     Dates: start: 20150805, end: 20150807
  259. RANITIDINE [Concomitant]
     Active Substance: RANITIDINE
     Dosage: 150 MILLIGRAM, QD (DOSE FORM: 245; CUMULATIVE DOSE: 6000 MG)
     Route: 048
     Dates: start: 20150825, end: 20150827
  260. RANITIDINE [Concomitant]
     Active Substance: RANITIDINE
     Dosage: 150 MG, QD (PHARMACEUTICAL DOSE FORM: 245)
     Route: 048
     Dates: start: 20150825
  261. RANITIDINE [Concomitant]
     Active Substance: RANITIDINE
     Indication: Product used for unknown indication
     Dosage: 150 MG, QD (DOSE FORM: 245)
     Route: 048
     Dates: start: 20150825
  262. RANITIDINE [Concomitant]
     Active Substance: RANITIDINE
     Dosage: 150 MG, QD (DOSE FORM: 245)
     Route: 048
     Dates: start: 20150825, end: 20150827
  263. RANITIDINE [Concomitant]
     Active Substance: RANITIDINE
     Dosage: 150 MG, QD
     Route: 048
     Dates: start: 20150805, end: 20150807
  264. RANITIDINE [Concomitant]
     Active Substance: RANITIDINE
     Dosage: 150 MG, QD
     Dates: start: 20150825, end: 20150827
  265. RANITIDINE [Concomitant]
     Active Substance: RANITIDINE
     Dosage: 150 MG, QD
     Dates: start: 20150805, end: 20150807
  266. SENNOSIDE B [Concomitant]
     Active Substance: SENNOSIDE B
     Indication: Constipation
     Dosage: 15 MG, 15 MILLIGRAM, UNK (DOSE FORM: 245)
     Route: 048
     Dates: start: 20160809, end: 20190406
  267. SENNOSIDE B [Concomitant]
     Active Substance: SENNOSIDE B
     Dosage: 30 MG, QD, 30 MILLIGRAM, QD (DOSE FORM: 245)
     Route: 048
     Dates: start: 20160809, end: 20190406
  268. SENNOSIDE B [Concomitant]
     Active Substance: SENNOSIDE B
     Dosage: 30 MILLIGRAM, QD (DOSE FORM: 245)
     Route: 048
     Dates: start: 20160809, end: 20190406
  269. SENNOSIDE B [Concomitant]
     Active Substance: SENNOSIDE B
     Dosage: 15 MILLIGRAM, UNK (DOSE FORM: 245)
     Route: 048
     Dates: start: 20160809, end: 20190406
  270. SENNOSIDE B [Concomitant]
     Active Substance: SENNOSIDE B
     Dosage: 15 MILLIGRAM, UNK
     Route: 048
     Dates: start: 20160809, end: 20190406
  271. SIMETHICONE (DIMETHICONE) [Concomitant]
     Active Substance: DIMETHICONE
     Dosage: UNK
  272. SIMETHICONE (DIMETHICONE) [Concomitant]
     Active Substance: DIMETHICONE
     Dosage: UNK
  273. POTASSIUM BICARBONATE\POTASSIUM CHLORIDE [Concomitant]
     Active Substance: POTASSIUM BICARBONATE\POTASSIUM CHLORIDE
     Indication: Product used for unknown indication
     Dosage: UNK (PHARMACEUTICAL DOSE FORM: 245)
     Route: 048
     Dates: start: 20180605, end: 20180607
  274. POTASSIUM BICARBONATE\POTASSIUM CHLORIDE [Concomitant]
     Active Substance: POTASSIUM BICARBONATE\POTASSIUM CHLORIDE
     Dosage: 4 DOSAGE FORM, QD (4 DF, QD, 4 DOSAGE FORM, QD); (PHARMACEUTICAL DOSE FORM: 245)
     Route: 048
     Dates: start: 20181120, end: 20181125
  275. POTASSIUM BICARBONATE\POTASSIUM CHLORIDE [Concomitant]
     Active Substance: POTASSIUM BICARBONATE\POTASSIUM CHLORIDE
     Dosage: UNK
  276. POTASSIUM BICARBONATE\POTASSIUM CHLORIDE [Concomitant]
     Active Substance: POTASSIUM BICARBONATE\POTASSIUM CHLORIDE
     Dosage: 2 NO UNIT EVERY 1 DAY (DOSE FORM: 245)
     Route: 048
     Dates: start: 20181120, end: 20181125
  277. POTASSIUM BICARBONATE\POTASSIUM CHLORIDE [Concomitant]
     Active Substance: POTASSIUM BICARBONATE\POTASSIUM CHLORIDE
     Dosage: UNK PER 0.5 DAY
     Route: 048
     Dates: start: 20181120, end: 20181125
  278. POTASSIUM BICARBONATE\POTASSIUM CHLORIDE [Concomitant]
     Active Substance: POTASSIUM BICARBONATE\POTASSIUM CHLORIDE
     Indication: Product used for unknown indication
  279. POTASSIUM BICARBONATE\POTASSIUM CHLORIDE [Concomitant]
     Active Substance: POTASSIUM BICARBONATE\POTASSIUM CHLORIDE
     Indication: Product used for unknown indication
     Dosage: UNK; ; (DOSE FORM: 245)
     Route: 048
     Dates: start: 20180605, end: 20180607
  280. POTASSIUM BICARBONATE\POTASSIUM CHLORIDE [Concomitant]
     Active Substance: POTASSIUM BICARBONATE\POTASSIUM CHLORIDE
     Dosage: 4 DF, QD, 4 DOSAGE FORM, QD (DOSE FORM: 245)
     Route: 048
     Dates: start: 20181120, end: 20181125
  281. POTASSIUM BICARBONATE\POTASSIUM CHLORIDE [Concomitant]
     Active Substance: POTASSIUM BICARBONATE\POTASSIUM CHLORIDE
     Dosage: UNK, EVERY 0.5 DAYS
     Route: 048
     Dates: start: 20181120, end: 20181125
  282. POTASSIUM BICARBONATE\POTASSIUM CHLORIDE [Concomitant]
     Active Substance: POTASSIUM BICARBONATE\POTASSIUM CHLORIDE
     Dosage: UNK, EVERY 0.5 DAY (ADDITIONAL INFO: SANDO K [POTASSIUM BICARBONATE;POTASSIUM CHLORIDE])
     Dates: start: 20181120, end: 20181125
  283. TICARCILLIN [Concomitant]
     Active Substance: TICARCILLIN
     Indication: Infection
     Dosage: 125 MILLIGRAM, QD (DOSE FORM: 245); 125 MG, QD
     Route: 048
     Dates: start: 20150804, end: 20150810
  284. TICARCILLIN [Concomitant]
     Active Substance: TICARCILLIN
     Dosage: 125 MILLIGRAM, QD
     Route: 048
     Dates: start: 20150804, end: 20150810
  285. TICARCILLIN [Concomitant]
     Active Substance: TICARCILLIN
     Indication: Infection
     Dosage: 125 MG, QD
     Dates: start: 20150804, end: 20150810
  286. TICARCILLIN [Concomitant]
     Active Substance: TICARCILLIN
     Dosage: 125 MILLIGRAM, QD
     Dates: start: 20150804, end: 20150810
  287. CLAVULANIC ACID [Concomitant]
     Active Substance: CLAVULANIC ACID
     Indication: Infection
     Dosage: 125 MG, QD
     Dates: start: 20150804, end: 20150810
  288. SENNOSIDE B [Concomitant]
     Active Substance: SENNOSIDE B
     Indication: Constipation
     Dosage: 30 MILLIGRAM, QD (ADDITIONAL INFO: DRUG_CUMULATIVE_DOSAGE_NUMBER: 25261.25)
     Dates: start: 20160809, end: 20190406
  289. SENNOSIDE B [Concomitant]
     Active Substance: SENNOSIDE B
     Dosage: 15 MILLIGRAM, UNK (ADDITIONAL INFO: DRUG_CUMULATIVE_DOSAGE_NUMBER: 25261.25)
     Dates: start: 20160809, end: 20190406
  290. CALAMINE [Concomitant]
     Active Substance: CALAMINE\FERRIC OXIDE RED\ZINC OXIDE
     Indication: Product used for unknown indication
     Dosage: UNK (ADDITIONAL INFO: CALAMINE [CALAMINE;GLYCEROL;ZINC OXIDE])
     Dates: start: 201508, end: 201601

REACTIONS (32)
  - Disease progression [Fatal]
  - Hypokalaemia [Recovered/Resolved]
  - Hypokalaemia [Recovered/Resolved]
  - Condition aggravated [Recovered/Resolved]
  - Dementia [Recovered/Resolved]
  - Amnesia [Not Recovered/Not Resolved]
  - Catheter site haemorrhage [Recovered/Resolved]
  - Chest discomfort [Recovered/Resolved]
  - Nail dystrophy [Recovered/Resolved]
  - Panic attack [Not Recovered/Not Resolved]
  - Memory impairment [Recovered/Resolved]
  - Axillary pain [Recovered/Resolved]
  - Appendicitis [Recovered/Resolved]
  - Seizure [Recovered/Resolved]
  - Seizure [Recovered/Resolved]
  - Diarrhoea [Recovered/Resolved]
  - Anaphylactic reaction [Recovered/Resolved]
  - Neuropathy peripheral [Not Recovered/Not Resolved]
  - Neuropathy peripheral [Recovered/Resolved]
  - Neuropathy peripheral [Recovered/Resolved]
  - Neuropathy peripheral [Not Recovered/Not Resolved]
  - Neuropathy peripheral [Not Recovered/Not Resolved]
  - Constipation [Not Recovered/Not Resolved]
  - Dry skin [Recovered/Resolved]
  - Ejection fraction decreased [Unknown]
  - Fatigue [Recovered/Resolved]
  - Lacrimation increased [Recovered/Resolved]
  - Pruritus [Recovered/Resolved]
  - Neuropathy peripheral [Not Recovered/Not Resolved]
  - Insomnia [Not Recovered/Not Resolved]
  - Off label use [Unknown]
  - Off label use [Unknown]

NARRATIVE: CASE EVENT DATE: 20150624
